FAERS Safety Report 9003288 (Version 3)
Quarter: 2013Q1

REPORT INFORMATION
  Report Type: Spontaneous
  Country: US (occurrence: US)
  Receive Date: 20130108
  Receipt Date: 20130225
  Transmission Date: 20140127
  Serious: Yes (Death, Hospitalization)
  Sender: FDA-Public Use
  Company Number: US-JNJFOC-20130102687

PATIENT
  Sex: Male
  Weight: 104.33 kg

DRUGS (12)
  1. STELARA [Suspect]
     Indication: PSORIASIS
     Route: 058
     Dates: start: 20111128, end: 20121015
  2. NEXIUM [Concomitant]
     Route: 065
  3. LYRICA [Concomitant]
     Route: 065
  4. FLOMAX [Concomitant]
     Route: 065
  5. METANX [Concomitant]
     Route: 065
  6. FOLIC ACID [Concomitant]
     Route: 065
  7. ZETIA [Concomitant]
     Route: 065
  8. PRADAXA [Concomitant]
     Route: 065
  9. LOVAZA [Concomitant]
     Indication: HYPERLIPIDAEMIA
     Route: 065
  10. CARAFATE [Concomitant]
     Route: 065
  11. BYSTOLIC [Concomitant]
     Route: 065
  12. EXFORGE [Concomitant]
     Indication: HYPERTENSION
     Route: 065

REACTIONS (1)
  - Histoplasmosis [Fatal]
